FAERS Safety Report 22596046 (Version 1)
Quarter: 2023Q2

REPORT INFORMATION
  Report Type: Spontaneous
  Country: BG (occurrence: BG)
  Receive Date: 20230613
  Receipt Date: 20230613
  Transmission Date: 20230721
  Serious: Yes (Other)
  Sender: FDA-Public Use
  Company Number: BG-CHEPLA-2023006040

PATIENT
  Age: 67 Year
  Sex: Female

DRUGS (1)
  1. CANDESARTAN [Suspect]
     Active Substance: CANDESARTAN
     Indication: Hypertension
     Dosage: DRUG INTAKE IS IRREGULAR,PT TAKES MONTHLY BREAKS
     Route: 065

REACTIONS (4)
  - Malignant melanoma stage I [Recovering/Resolving]
  - Dysplastic naevus [Unknown]
  - Treatment noncompliance [Unknown]
  - Product contamination chemical [Unknown]
